FAERS Safety Report 8455977-4 (Version None)
Quarter: 2012Q2

REPORT INFORMATION
  Report Type: 
  Country: None (occurrence: None)
  Receive Date: 20120621
  Receipt Date: 20120618
  Transmission Date: 20120825
  Serious: Yes (Hospitalization)
  Sender: FDA-Public Use
  Company Number: US-TEVA-344133USA

PATIENT
  Age: 50 Year
  Sex: Female

DRUGS (3)
  1. GABAPENTIN [Suspect]
     Dosage: 25 X 300MG CAPSULES (7500MG)
     Route: 048
  2. GABAPENTIN [Suspect]
     Indication: OVERDOSE
     Dosage: UP TO 80 X 300MG CAPSULES (APPROXIMATELY 24 000MG)
     Route: 048
  3. GABAPENTIN [Suspect]
     Indication: DRUG ABUSE
     Route: 065

REACTIONS (5)
  - OVERDOSE [None]
  - POSTERIOR REVERSIBLE ENCEPHALOPATHY SYNDROME [None]
  - DEPRESSED LEVEL OF CONSCIOUSNESS [None]
  - DYSKINESIA [None]
  - DRUG ABUSE [None]
